FAERS Safety Report 8117660-4 (Version None)
Quarter: 2012Q1

REPORT INFORMATION
  Report Type: 
  Country: None (occurrence: None)
  Receive Date: 20120203
  Receipt Date: 20120203
  Transmission Date: 20120608
  Serious: No
  Sender: FDA-Public Use
  Company Number: None

PATIENT
  Sex: Female

DRUGS (2)
  1. DEPAKOTE ER [Suspect]
     Dosage: 1250MG HS PO
     Route: 048
  2. DEPAKOTE ER [Suspect]
     Indication: PSYCHOTIC DISORDER
     Dosage: 1000MG QAM PO
     Route: 048
     Dates: start: 20111220

REACTIONS (1)
  - NEUTROPHIL COUNT ABNORMAL [None]
